FAERS Safety Report 4800863-1 (Version None)
Quarter: 2005Q4

REPORT INFORMATION
  Report Type: 
  Country: None (occurrence: None)
  Receive Date: 20051011
  Receipt Date: 20050929
  Transmission Date: 20060501
  Serious: Yes (Death, Other)
  Sender: FDA-Public Use
  Company Number: 2005135907

PATIENT
  Age: 19 Year
  Sex: Female

DRUGS (9)
  1. METHYLPREDNISOLONE [Suspect]
     Indication: GRAFT VERSUS HOST DISEASE
     Dosage: 1 MG/KG, PER DAY)
  2. CYCLOSPORINE [Suspect]
     Indication: GRAFT VERSUS HOST DISEASE
  3. CLADRIBINE [Concomitant]
  4. BUSULFAN (BUSULFAN) [Concomitant]
  5. ANTITHYMOCYTE IMMUNOGLOBULIN (ANTITHYMOCYTE IMMUNOGLOBULIN) [Concomitant]
  6. MEROPENEM (MEROPENEM) [Concomitant]
  7. VANCOMYCIN [Concomitant]
  8. FLUCONAZOLE [Concomitant]
  9. AMPHOTERICIN B [Concomitant]

REACTIONS (13)
  - ASCITES [None]
  - ASPERGILLOSIS [None]
  - CONDITION AGGRAVATED [None]
  - DIARRHOEA [None]
  - DRUG INEFFECTIVE [None]
  - GRAFT VERSUS HOST DISEASE [None]
  - GRAND MAL CONVULSION [None]
  - HYPERBILIRUBINAEMIA [None]
  - MULTI-ORGAN FAILURE [None]
  - NECROSIS [None]
  - RETINAL INFARCTION [None]
  - RETINITIS [None]
  - VENOOCCLUSIVE LIVER DISEASE [None]
